FAERS Safety Report 16686535 (Version 1)
Quarter: 2019Q3

REPORT INFORMATION
  Report Type: Report from Study
  Country: TR (occurrence: TR)
  Receive Date: 20190809
  Receipt Date: 20190809
  Transmission Date: 20191004
  Serious: Yes (Other)
  Sender: FDA-Public Use
  Company Number: TR-SUN PHARMACEUTICAL INDUSTRIES LTD-2019RR-217018

PATIENT
  Age: 49 Year
  Sex: Male

DRUGS (8)
  1. ETHAMBUTOL [Suspect]
     Active Substance: ETHAMBUTOL HYDROCHLORIDE
     Indication: MYCOBACTERIUM ABSCESSUS INFECTION
     Route: 065
  2. TRIMETHOPRIM. [Suspect]
     Active Substance: TRIMETHOPRIM
     Indication: MYCOBACTERIUM ABSCESSUS INFECTION
     Route: 065
  3. STREPTOMYCIN [Suspect]
     Active Substance: STREPTOMYCIN SULFATE
     Indication: MYCOBACTERIUM ABSCESSUS INFECTION
     Route: 065
  4. TOBRAMYCIN. [Suspect]
     Active Substance: TOBRAMYCIN
     Indication: MYCOBACTERIUM ABSCESSUS INFECTION
     Dosage: UNK
     Route: 065
  5. DOXYCYCLINE. [Suspect]
     Active Substance: DOXYCYCLINE
     Indication: MYCOBACTERIUM ABSCESSUS INFECTION
  6. ISONIAZID. [Suspect]
     Active Substance: ISONIAZID
     Indication: MYCOBACTERIUM ABSCESSUS INFECTION
     Route: 065
  7. IMIPENEM [Suspect]
     Active Substance: IMIPENEM
     Indication: MYCOBACTERIUM ABSCESSUS INFECTION
  8. RIFAMPICIN [Suspect]
     Active Substance: RIFAMPIN
     Indication: MYCOBACTERIUM ABSCESSUS INFECTION
     Route: 065

REACTIONS (1)
  - Pathogen resistance [Unknown]
